FAERS Safety Report 7198672-4 (Version None)
Quarter: 2010Q4

REPORT INFORMATION
  Report Type: 
  Country: None (occurrence: None)
  Receive Date: 20101227
  Receipt Date: 20101216
  Transmission Date: 20110411
  Serious: Yes (Other)
  Sender: FDA-Public Use
  Company Number: FR-JNJFOC-20101207937

PATIENT
  Age: 70 Year
  Sex: Female

DRUGS (2)
  1. TOPALGIC [Suspect]
     Indication: PRODUCT USED FOR UNKNOWN INDICATION
     Dosage: 100MG DAILY
     Route: 048
  2. STILNOX [Suspect]
     Indication: PRODUCT USED FOR UNKNOWN INDICATION
     Dosage: 10MG TABLET; DOSE: 5-10 MG/D - 1/2 TO 1 TABLET DAILY
     Route: 048

REACTIONS (5)
  - ALOPECIA [None]
  - DRUG DEPENDENCE [None]
  - FATIGUE [None]
  - PAIN [None]
  - WITHDRAWAL SYNDROME [None]
